FAERS Safety Report 9426402 (Version 1)
Quarter: 2013Q3

REPORT INFORMATION
  Report Type: Spontaneous
  Country: US (occurrence: None)
  Receive Date: 20130729
  Receipt Date: 20130729
  Transmission Date: 20140515
  Serious: Yes (Life-Threatening)
  Sender: FDA-Public Use
  Company Number: None

PATIENT
  Age: 84 Year
  Sex: Male
  Weight: 75.8 kg

DRUGS (1)
  1. ALBUTEROL/IPRATROPIUM [Suspect]
     Indication: CHRONIC OBSTRUCTIVE PULMONARY DISEASE
     Dosage: 1 PUFF MCG QID INHALE
     Route: 055
     Dates: start: 20130620, end: 20130622

REACTIONS (2)
  - Angioedema [None]
  - Dyspnoea [None]
